FAERS Safety Report 6713023-4 (Version None)
Quarter: 2010Q2

REPORT INFORMATION
  Report Type: 
  Country: None (occurrence: None)
  Receive Date: 20100505
  Receipt Date: 20100505
  Transmission Date: 20101027
  Serious: Yes (Hospitalization)
  Sender: FDA-Public Use
  Company Number: None

PATIENT
  Age: 36 Year
  Sex: Female
  Weight: 71 kg

DRUGS (12)
  1. MORPHINE SULFATE [Suspect]
     Indication: SICKLE CELL ANAEMIA WITH CRISIS
     Dosage: 1 MG CONTINUOUS INFUSION RATE CONTINUOUS IV 1/25/2010 6 PM - 1/28/2010 4 PM
     Route: 042
     Dates: start: 20100125
  2. MORPHINE SULFATE [Suspect]
     Indication: SICKLE CELL ANAEMIA WITH CRISIS
     Dosage: 1 MG CONTINUOUS INFUSION RATE CONTINUOUS IV 1/25/2010 6 PM - 1/28/2010 4 PM
     Route: 042
     Dates: start: 20100128
  3. DOCUSATE SULFATE [Concomitant]
  4. OMEPRAXOLE [Concomitant]
  5. ACETAMINOPHEN [Concomitant]
  6. LEVOFLOXACIN [Concomitant]
  7. ENOXAPARIN SODIUM [Concomitant]
  8. MAGNESIUM SULFATE [Concomitant]
  9. PROMETHAZINE [Concomitant]
  10. METOCLOPRAMIDE HYDROCHLORIDE [Concomitant]
  11. FUROSEMID [Concomitant]
  12. DIPHENHYDRAMINE [Concomitant]

REACTIONS (8)
  - BLOOD PRESSURE DECREASED [None]
  - CARDIAC DISORDER [None]
  - DILATATION VENTRICULAR [None]
  - HAEMOGLOBIN DECREASED [None]
  - HEPATIC FUNCTION ABNORMAL [None]
  - PULMONARY HYPERTENSION [None]
  - RESPIRATORY DEPRESSION [None]
  - RIGHT VENTRICULAR DYSFUNCTION [None]
